FAERS Safety Report 9833538 (Version 1)
Quarter: 2014Q1

REPORT INFORMATION
  Report Type: Spontaneous
  Country: GB (occurrence: GB)
  Receive Date: 20140122
  Receipt Date: 20140122
  Transmission Date: 20141002
  Serious: Yes (Hospitalization, Other)
  Sender: FDA-Public Use
  Company Number: GB-ROCHE-1335320

PATIENT
  Sex: Male

DRUGS (9)
  1. PEG-INTERFERON ALFA 2A [Suspect]
     Indication: HEPATITIS C
     Route: 065
     Dates: start: 20130920, end: 20131107
  2. INCIVEK [Suspect]
     Indication: HEPATITIS C
     Route: 048
     Dates: start: 20130920, end: 20131107
  3. TRIBAVIRIN [Suspect]
     Indication: HEPATITIS C
     Route: 065
     Dates: start: 20130920, end: 20131107
  4. AMLODIPINE [Concomitant]
     Indication: BLOOD PRESSURE
     Route: 065
  5. DOXAZOSIN [Concomitant]
     Indication: BLOOD PRESSURE
     Route: 065
  6. FEXOFENADINE [Concomitant]
     Route: 065
  7. GLICLAZIDE [Concomitant]
     Indication: TYPE 2 DIABETES MELLITUS
     Route: 065
  8. LANSOPRAZOLE [Concomitant]
     Indication: GASTROOESOPHAGEAL REFLUX DISEASE
     Route: 065
  9. LISINOPRIL [Concomitant]
     Indication: BLOOD PRESSURE
     Route: 065

REACTIONS (1)
  - Blood creatinine increased [Recovered/Resolved]
